FAERS Safety Report 7238941-2 (Version None)
Quarter: 2011Q1

REPORT INFORMATION
  Report Type: 
  Country: None (occurrence: None)
  Receive Date: 20110121
  Receipt Date: 20110113
  Transmission Date: 20110831
  Serious: No
  Sender: FDA-Public Use
  Company Number: US-B.I. PHARMACEUTICALS,INC./RIDGEFIELD-2011-BP-01225BP

PATIENT
  Sex: Female

DRUGS (9)
  1. AMIODARONE [Concomitant]
     Indication: ATRIAL FIBRILLATION
  2. METOPROLOL [Concomitant]
     Indication: HYPERTENSION
  3. LOSARTAN [Concomitant]
     Indication: HYPERTENSION
  4. SYNTHROID [Concomitant]
     Indication: HYPOTHYROIDISM
  5. PRADAXA [Suspect]
     Indication: ATRIAL FIBRILLATION
     Dosage: 300 MG
     Route: 048
     Dates: start: 20101101
  6. HYDROCHLOROTHIAZIDE [Concomitant]
     Indication: FLUID RETENTION
  7. MULTIVITAMIN [Concomitant]
     Indication: PROPHYLAXIS
  8. DIGOXIN [Concomitant]
     Indication: ATRIAL FIBRILLATION
  9. COQ10 [Concomitant]
     Indication: PROPHYLAXIS

REACTIONS (3)
  - GINGIVAL BLEEDING [None]
  - MUSCULOSKELETAL PAIN [None]
  - HAEMATOCHEZIA [None]
